FAERS Safety Report 23135468 (Version 1)
Quarter: 2023Q4

REPORT INFORMATION
  Report Type: Spontaneous
  Country: US (occurrence: None)
  Receive Date: 20231101
  Receipt Date: 20231101
  Transmission Date: 20240109
  Serious: No
  Sender: FDA-Public Use
  Company Number: None

PATIENT

DRUGS (2)
  1. OFLOXACIN [Suspect]
     Active Substance: OFLOXACIN
  2. OFLOXACIN [Suspect]
     Active Substance: OFLOXACIN
     Route: 031

REACTIONS (4)
  - Product name confusion [None]
  - Product dispensing error [None]
  - Product packaging confusion [None]
  - Product label confusion [None]
